FAERS Safety Report 11593686 (Version 5)
Quarter: 2016Q1

REPORT INFORMATION
  Report Type: Spontaneous
  Country: US (occurrence: US)
  Receive Date: 20151005
  Receipt Date: 20160121
  Transmission Date: 20160525
  Serious: Yes (Hospitalization, Other)
  Sender: FDA-Public Use
  Company Number: US-GLAXOSMITHKLINE-US2015GSK139596

PATIENT
  Age: 85 Year
  Sex: Female
  Weight: 42.63 kg

DRUGS (1)
  1. FLOVENT [Suspect]
     Active Substance: FLUTICASONE PROPIONATE
     Indication: CHRONIC OBSTRUCTIVE PULMONARY DISEASE
     Dosage: UNK
     Route: 055
     Dates: start: 201201

REACTIONS (6)
  - Sedation [Unknown]
  - Hip surgery [Unknown]
  - Gastrointestinal infection [Unknown]
  - Fall [Unknown]
  - Dementia [Unknown]
  - Hip fracture [Unknown]

NARRATIVE: CASE EVENT DATE: 20150701
